FAERS Safety Report 17194872 (Version 6)
Quarter: 2021Q2

REPORT INFORMATION
  Report Type: Spontaneous
  Country: BR (occurrence: BR)
  Receive Date: 20191224
  Receipt Date: 20210610
  Transmission Date: 20210716
  Serious: Yes (Other)
  Sender: FDA-Public Use
  Company Number: BR-GLAXOSMITHKLINE-BR2019AMR217061

PATIENT
  Age: 71 Year
  Sex: Female
  Weight: 90 kg

DRUGS (12)
  1. FOSTAIR [Suspect]
     Active Substance: BECLOMETHASONE\FORMOTEROL
     Indication: THERAPEUTIC PROCEDURE
     Dosage: UNK
  2. NUCALA [Suspect]
     Active Substance: MEPOLIZUMAB
     Indication: ASTHMA
     Dosage: 100 MG, Z (MONTHLY)
     Route: 042
     Dates: start: 20191003
  3. DUOVENT (ANHYDROUS IPRATROPIUM BROMIDE + FENOTEROL HYDROBROMIDE) [Suspect]
     Active Substance: FENOTEROL HYDROBROMIDE\IPRATROPIUM BROMIDE
     Indication: ASTHMATIC CRISIS
     Dosage: UNK (ONLY WHEN NECESSARY)
  4. MONTELUKAST [Suspect]
     Active Substance: MONTELUKAST SODIUM
     Indication: THERAPEUTIC PROCEDURE
     Dosage: 10 MG, QD
  5. SPIRIVA RESPIMAT [Suspect]
     Active Substance: TIOTROPIUM BROMIDE
     Indication: THERAPEUTIC PROCEDURE
     Dosage: UNK
  6. BECLOMETASONE [Concomitant]
     Active Substance: BECLOMETHASONE DIPROPIONATE
     Indication: PRODUCT USED FOR UNKNOWN INDICATION
     Dosage: UNK
  7. MONTELUKAST [Suspect]
     Active Substance: MONTELUKAST SODIUM
     Dosage: UNK
  8. CITALOPRAM [Suspect]
     Active Substance: CITALOPRAM HYDROBROMIDE
     Indication: THERAPEUTIC PROCEDURE
     Dosage: UNK
  9. FORMOTEROL [Concomitant]
     Active Substance: FORMOTEROL
     Indication: PRODUCT USED FOR UNKNOWN INDICATION
     Dosage: UNK
  10. BUDESONIDE. [Suspect]
     Active Substance: BUDESONIDE
     Indication: THERAPEUTIC PROCEDURE
     Dosage: 400 MG, QD
  11. TIOTROPIUM [Concomitant]
     Active Substance: TIOTROPIUM
     Indication: PRODUCT USED FOR UNKNOWN INDICATION
     Dosage: 5 ?G, QD
  12. DUOVENT (ANHYDROUS IPRATROPIUM BROMIDE + FENOTEROL HYDROBROMIDE) [Suspect]
     Active Substance: FENOTEROL HYDROBROMIDE\IPRATROPIUM BROMIDE
     Indication: THERAPEUTIC PROCEDURE
     Dosage: UNK
     Dates: start: 20191215, end: 20191220

REACTIONS (19)
  - Asthmatic crisis [Recovered/Resolved]
  - Mouth haemorrhage [Recovered/Resolved]
  - Speech disorder [Recovered/Resolved]
  - Tooth extraction [Recovered/Resolved]
  - Secretion discharge [Recovered/Resolved]
  - Wrist fracture [Unknown]
  - Joint dislocation [Unknown]
  - Musculoskeletal chest pain [Unknown]
  - Forearm fracture [Unknown]
  - Upper respiratory tract infection [Recovered/Resolved]
  - Wheezing [Recovered/Resolved]
  - Sputum discoloured [Unknown]
  - Fall [Unknown]
  - Productive cough [Unknown]
  - Nasopharyngitis [Recovered/Resolved]
  - Cough [Not Recovered/Not Resolved]
  - Dyspnoea [Not Recovered/Not Resolved]
  - Rib fracture [Not Recovered/Not Resolved]
  - Mouth swelling [Recovered/Resolved]

NARRATIVE: CASE EVENT DATE: 20191128
